FAERS Safety Report 6313245-0 (Version None)
Quarter: 2009Q3

REPORT INFORMATION
  Report Type: 
  Country: None (occurrence: None)
  Receive Date: 20090818
  Receipt Date: 20090813
  Transmission Date: 20100115
  Serious: Yes (Hospitalization)
  Sender: FDA-Public Use
  Company Number: FR-B.I. PHARMACEUTICALS,INC./RIDGEFIELD-2009-FF-00558FF

PATIENT
  Age: 81 Year
  Sex: Female

DRUGS (2)
  1. MICARDIS [Suspect]
     Dosage: 40 MG
     Route: 048
     Dates: end: 20090312
  2. AMLOR [Suspect]
     Route: 048
     Dates: end: 20090312

REACTIONS (4)
  - ASTHENIA [None]
  - BALANCE DISORDER [None]
  - ORTHOSTATIC HYPOTENSION [None]
  - VERTIGO [None]
